FAERS Safety Report 7560353-2 (Version None)
Quarter: 2011Q2

REPORT INFORMATION
  Report Type: 
  Country: None (occurrence: None)
  Receive Date: 20110621
  Receipt Date: 20110606
  Transmission Date: 20111010
  Serious: Yes (Hospitalization)
  Sender: FDA-Public Use
  Company Number: US-ARROW GEN-2011-07977

PATIENT
  Sex: Female

DRUGS (4)
  1. FOSAMAX [Suspect]
     Indication: OSTEOPENIA
     Dosage: UNK
     Route: 048
     Dates: start: 20040101, end: 20070101
  2. ALENDRONATE SODIUM [Suspect]
     Indication: OSTEOPOROSIS
  3. ALENDRONATE SODIUM [Suspect]
     Indication: OSTEOPENIA
     Dosage: UNK
     Route: 048
     Dates: start: 20040101, end: 20070101
  4. FOSAMAX [Suspect]
     Indication: OSTEOPOROSIS

REACTIONS (4)
  - FEMUR FRACTURE [None]
  - STRESS FRACTURE [None]
  - BONE DISORDER [None]
  - LOW TURNOVER OSTEOPATHY [None]
